FAERS Safety Report 6162780-7 (Version None)
Quarter: 2009Q2

REPORT INFORMATION
  Report Type: 
  Country: None (occurrence: None)
  Receive Date: 20090421
  Receipt Date: 20080707
  Transmission Date: 20091009
  Serious: No
  Sender: FDA-Public Use
  Company Number: US-ASTRAZENECA-2008UW13588

PATIENT
  Sex: Male

DRUGS (2)
  1. TOPROL-XL [Suspect]
     Indication: HYPERTENSION
     Route: 048
  2. ATACAND HCT [Suspect]
     Indication: HYPERTENSION
     Dosage: 32/12 MG

REACTIONS (2)
  - DRUG INEFFECTIVE [None]
  - HYPERTENSION [None]
